FAERS Safety Report 14897479 (Version 4)
Quarter: 2018Q3

REPORT INFORMATION
  Report Type: Report from Study
  Country: US (occurrence: US)
  Receive Date: 20180515
  Receipt Date: 20180804
  Transmission Date: 20181010
  Serious: Yes (Hospitalization, Other)
  Sender: FDA-Public Use
  Company Number: US-BAYER-2018-088766

PATIENT
  Age: 71 Year
  Sex: Male

DRUGS (1)
  1. STIVARGA [Suspect]
     Active Substance: REGORAFENIB
     Indication: OESOPHAGEAL CARCINOMA
     Dosage: 160 MG, QD
     Route: 048
     Dates: start: 20180417, end: 2018

REACTIONS (14)
  - Dehydration [None]
  - Blood pressure decreased [None]
  - Rectal haemorrhage [None]
  - Metastasis [None]
  - Neuropathy peripheral [Not Recovered/Not Resolved]
  - Asthenia [None]
  - Fatigue [Not Recovered/Not Resolved]
  - Product use in unapproved indication [None]
  - Decreased appetite [Not Recovered/Not Resolved]
  - Haematemesis [None]
  - Decreased appetite [None]
  - Off label use [None]
  - Nausea [Not Recovered/Not Resolved]
  - Diarrhoea [Not Recovered/Not Resolved]

NARRATIVE: CASE EVENT DATE: 2018
